FAERS Safety Report 18769655 (Version 2)
Quarter: 2021Q1

REPORT INFORMATION
  Report Type: Spontaneous
  Country: US (occurrence: US)
  Receive Date: 20210121
  Receipt Date: 20210126
  Transmission Date: 20210419
  Serious: No
  Sender: FDA-Public Use
  Company Number: US-PFIZER INC-2021034144

PATIENT
  Age: 56 Year
  Sex: Female

DRUGS (1)
  1. XELJANZ XR [Suspect]
     Active Substance: TOFACITINIB CITRATE
     Indication: RHEUMATOID ARTHRITIS
     Dosage: 11 MG, DAILY
     Route: 048
     Dates: start: 20201112

REACTIONS (7)
  - Rhinorrhoea [Unknown]
  - Headache [Unknown]
  - Cough [Unknown]
  - Fatigue [Unknown]
  - Nasal congestion [Unknown]
  - Feeling abnormal [Unknown]
  - Drug ineffective [Unknown]
